FAERS Safety Report 19890145 (Version 5)
Quarter: 2022Q2

REPORT INFORMATION
  Report Type: Report from Study
  Country: JP (occurrence: JP)
  Receive Date: 20210928
  Receipt Date: 20220428
  Transmission Date: 20220721
  Serious: Yes (Hospitalization, Other)
  Sender: FDA-Public Use
  Company Number: JP-BRISTOL-MYERS SQUIBB COMPANY-BMS-2021-079307

PATIENT
  Age: 61 Year
  Sex: Male
  Weight: 65.5 kg

DRUGS (8)
  1. YERVOY [Suspect]
     Active Substance: IPILIMUMAB
     Indication: Metastatic renal cell carcinoma
     Route: 065
     Dates: start: 20210816, end: 20210816
  2. YERVOY [Suspect]
     Active Substance: IPILIMUMAB
     Route: 065
     Dates: start: 20210917, end: 20211008
  3. YERVOY [Suspect]
     Active Substance: IPILIMUMAB
     Route: 065
     Dates: start: 20211008, end: 20211008
  4. OPDIVO [Suspect]
     Active Substance: NIVOLUMAB
     Indication: Metastatic renal cell carcinoma
     Route: 065
     Dates: start: 20210816, end: 20210816
  5. OPDIVO [Suspect]
     Active Substance: NIVOLUMAB
     Route: 065
     Dates: start: 20210917, end: 20210917
  6. OPDIVO [Suspect]
     Active Substance: NIVOLUMAB
     Route: 065
     Dates: start: 20211008, end: 20211008
  7. OMNIPAQUE [Suspect]
     Active Substance: IOHEXOL
     Indication: Computerised tomogram
     Dates: start: 20210819, end: 20210819
  8. OMNIPAQUE [Suspect]
     Active Substance: IOHEXOL
     Indication: Scan with contrast

REACTIONS (14)
  - Myocardial infarction [Recovered/Resolved]
  - Hyponatraemia [Recovering/Resolving]
  - C-reactive protein increased [Unknown]
  - Coronary artery stenosis [Unknown]
  - Malignant neoplasm progression [Unknown]
  - Drug eruption [Recovered/Resolved]
  - Pain [Unknown]
  - Hypertension [Unknown]
  - Arteriosclerosis [Unknown]
  - Decreased appetite [Recovering/Resolving]
  - Pyrexia [Unknown]
  - Immune-mediated hepatic disorder [Recovering/Resolving]
  - Immune-mediated encephalitis [Recovering/Resolving]
  - Pneumonia aspiration [Recovered/Resolved]

NARRATIVE: CASE EVENT DATE: 20210818
